FAERS Safety Report 16784947 (Version 1)
Quarter: 2019Q3

REPORT INFORMATION
  Report Type: Report from Study
  Country: IT (occurrence: IT)
  Receive Date: 20190909
  Receipt Date: 20190909
  Transmission Date: 20191005
  Serious: Yes (Other)
  Sender: FDA-Public Use
  Company Number: IT-TEVA-2019-IT-1103826

PATIENT
  Age: 87 Year
  Sex: Female

DRUGS (4)
  1. TORASEMIDE [Suspect]
     Active Substance: TORSEMIDE
     Indication: HYPERTENSION
     Dosage: 10 MG
     Route: 048
     Dates: start: 20190616, end: 20190622
  2. ATENOLOL. [Concomitant]
     Active Substance: ATENOLOL
     Indication: HYPERTENSION
     Route: 048
     Dates: start: 20190616, end: 20190622
  3. OLPREZIDE 40 MG/12.5 MG COMPRESSE SCANT WITH FILM [Concomitant]
     Indication: HYPERTENSION
  4. PRADAXA [Concomitant]
     Active Substance: DABIGATRAN ETEXILATE MESYLATE
     Indication: ATRIAL FIBRILLATION

REACTIONS (4)
  - Cardiac fibrillation [Recovering/Resolving]
  - Hypotension [Recovering/Resolving]
  - Malaise [Recovering/Resolving]
  - Vomiting [Recovering/Resolving]

NARRATIVE: CASE EVENT DATE: 20190618
